FAERS Safety Report 7901129-3 (Version None)
Quarter: 2011Q4

REPORT INFORMATION
  Report Type: 
  Country: None (occurrence: None)
  Receive Date: 20111108
  Receipt Date: 20111025
  Transmission Date: 20120403
  Serious: Yes (Other)
  Sender: FDA-Public Use
  Company Number: JP-PFIZER INC-2011261505

PATIENT
  Age: 80 Year
  Sex: Male

DRUGS (8)
  1. FERROUS CITRATE [Concomitant]
  2. NIFEDIPINE [Concomitant]
  3. TRICHLORMETHIAZIDE [Concomitant]
  4. LIPITOR [Suspect]
     Dosage: 5 MG DAILY
     Route: 048
     Dates: start: 20071201
  5. SELBEX [Concomitant]
  6. FUROSEMIDE [Concomitant]
  7. LIPITOR [Suspect]
     Dosage: 10 MG DAILY
     Route: 048
     Dates: start: 20081201
  8. PLETAL [Concomitant]

REACTIONS (1)
  - RENAL IMPAIRMENT [None]
